FAERS Safety Report 8188650-0 (Version None)
Quarter: 2012Q1

REPORT INFORMATION
  Report Type: 
  Country: None (occurrence: None)
  Receive Date: 20120306
  Receipt Date: 20120227
  Transmission Date: 20120608
  Serious: Yes (Other)
  Sender: FDA-Public Use
  Company Number: JP-JNJFOC-20111012817

PATIENT
  Age: 84 Year
  Sex: Male

DRUGS (2)
  1. FLUCONAZOLE [Suspect]
     Indication: CANDIDIASIS
     Route: 065
  2. ITRACONAZOLE [Suspect]
     Indication: CANDIDIASIS
     Dosage: FOR 2 WEEKS
     Route: 048

REACTIONS (2)
  - RENAL DISORDER [None]
  - CANDIDA ENDOPHTHALMITIS [None]
